FAERS Safety Report 14166077 (Version 2)
Quarter: 2018Q1

REPORT INFORMATION
  Report Type: Spontaneous
  Country: CA (occurrence: CA)
  Receive Date: 20171107
  Receipt Date: 20180115
  Transmission Date: 20180508
  Serious: Yes (Other)
  Sender: FDA-Public Use
  Company Number: CA-SA-2017SA210595

PATIENT
  Sex: Female

DRUGS (4)
  1. SULFASALAZINE. [Suspect]
     Active Substance: SULFASALAZINE
     Indication: RHEUMATOID ARTHRITIS
     Route: 065
     Dates: start: 20120201, end: 20130502
  2. ENBREL [Suspect]
     Active Substance: ETANERCEPT
     Indication: RHEUMATOID ARTHRITIS
     Route: 065
     Dates: start: 20140620, end: 20161025
  3. HUMIRA [Suspect]
     Active Substance: ADALIMUMAB
     Indication: RHEUMATOID ARTHRITIS
     Dosage: FORM: SOLUTION SUBCUTANEOUS
     Route: 058
     Dates: start: 20120615, end: 20131003
  4. LEFLUNOMIDE. [Suspect]
     Active Substance: LEFLUNOMIDE
     Route: 048
     Dates: start: 20110607, end: 20131013

REACTIONS (5)
  - Immune thrombocytopenic purpura [Unknown]
  - Drug ineffective [Unknown]
  - Rash [Unknown]
  - Rheumatoid arthritis [Unknown]
  - Drug intolerance [Unknown]
